FAERS Safety Report 6884668-6 (Version None)
Quarter: 2010Q3

REPORT INFORMATION
  Report Type: 
  Country: None (occurrence: None)
  Receive Date: 20100727
  Receipt Date: 20100720
  Transmission Date: 20110219
  Serious: Yes (Other)
  Sender: FDA-Public Use
  Company Number: DSA_43555_2010

PATIENT
  Sex: Male

DRUGS (14)
  1. XENAZINE [Suspect]
     Indication: HUNTINGTON'S DISEASE
     Dosage: (25 MG BID ORAL), (25 MG TID ORAL)
     Route: 048
     Dates: start: 20100423, end: 20100701
  2. XENAZINE [Suspect]
     Indication: HUNTINGTON'S DISEASE
     Dosage: (25 MG BID ORAL), (25 MG TID ORAL)
     Route: 048
     Dates: start: 20100702, end: 20100715
  3. FLUOXETINE [Concomitant]
  4. TOPIRAMATE [Concomitant]
  5. LEVOTHYROXINE [Concomitant]
  6. OMEPRAZOLE [Concomitant]
  7. AMANTADINE HCL [Concomitant]
  8. FLONASE [Concomitant]
  9. CHANTIX [Concomitant]
  10. METOCLOPRAM GI [Concomitant]
  11. POLYEX GLYCOLEX POWDER [Concomitant]
  12. ARICEPT [Concomitant]
  13. BUPROPION HYDROCHLORIDE [Concomitant]
  14. CLONAZEPAM [Concomitant]

REACTIONS (3)
  - CONCUSSION [None]
  - FALL [None]
  - REFUSAL OF TREATMENT BY PATIENT [None]
